FAERS Safety Report 8489716-8 (Version None)
Quarter: 2012Q3

REPORT INFORMATION
  Report Type: 
  Country: None (occurrence: None)
  Receive Date: 20120705
  Receipt Date: 20120702
  Transmission Date: 20120928
  Serious: Yes (Death)
  Sender: FDA-Public Use
  Company Number: AU-GLAXOSMITHKLINE-B0803428A

PATIENT
  Sex: Male

DRUGS (3)
  1. ACETAMINOPHEN W/ CODEINE [Concomitant]
  2. VENTOLIN [Suspect]
     Indication: ASTHMA
     Route: 065
  3. ZYPREXA [Concomitant]

REACTIONS (1)
  - ASTHMA [None]
